FAERS Safety Report 6949562-0 (Version None)
Quarter: 2010Q3

REPORT INFORMATION
  Report Type: 
  Country: None (occurrence: None)
  Receive Date: 20100828
  Receipt Date: 20091229
  Transmission Date: 20110219
  Serious: No
  Sender: FDA-Public Use
  Company Number: US-ABBOTT-10P-163-0617333-00

PATIENT
  Sex: Male
  Weight: 86.26 kg

DRUGS (6)
  1. NIASPAN [Suspect]
     Indication: BLOOD CHOLESTEROL INCREASED
     Dates: start: 20070101
  2. NIASPAN [Suspect]
     Indication: BLOOD TRIGLYCERIDES INCREASED
  3. ALOPURINOL [Concomitant]
     Indication: GOUT
  4. ATENOLOL [Concomitant]
     Indication: HYPERTENSION
  5. BENICAR [Concomitant]
     Indication: BLOOD PRESSURE
     Dosage: 40/12.5
  6. SOLNAR? [Concomitant]
     Indication: ATRIAL FIBRILLATION

REACTIONS (1)
  - WRONG TECHNIQUE IN DRUG USAGE PROCESS [None]
